FAERS Safety Report 10008424 (Version 2)
Quarter: 2014Q1

REPORT INFORMATION
  Report Type: Spontaneous
  Country: US (occurrence: US)
  Receive Date: 20140313
  Receipt Date: 20140313
  Transmission Date: 20141002
  Serious: Yes (Hospitalization, Other)
  Sender: FDA-Public Use
  Company Number: US-RB-063618-14

PATIENT
  Age: 57 Year
  Sex: Male

DRUGS (2)
  1. MUCINEX MAXIMUM STRENGTH [Suspect]
     Indication: PRODUCT USED FOR UNKNOWN INDICATION
     Dosage: 1 TABLET AT 12 NOON ON 24-FEB-2014 AND 1 AT 12 MIDNIGHT, ON 25-FEB-2014. TOOK A TOTAL OF 2 DOSES.
     Route: 048
     Dates: start: 20140224
  2. ANTIBIOTIC [Concomitant]
     Indication: INFECTION

REACTIONS (5)
  - Amnesia [Unknown]
  - Incontinence [Unknown]
  - Dysstasia [Unknown]
  - Lethargy [Unknown]
  - Headache [Unknown]
